FAERS Safety Report 7728122-8 (Version None)
Quarter: 2011Q3

REPORT INFORMATION
  Report Type: 
  Country: None (occurrence: None)
  Receive Date: 20110905
  Receipt Date: 20110830
  Transmission Date: 20111222
  Serious: Yes (Other)
  Sender: FDA-Public Use
  Company Number: CHPA2011GB11688

PATIENT
  Sex: Female

DRUGS (3)
  1. NICOTINE [Suspect]
     Indication: SMOKING CESSATION THERAPY
     Dosage: 48 MG, QD
  2. PLACEBO [Suspect]
     Dosage: UNK, UNK
     Route: 002
  3. NICOTINE [Suspect]
     Dosage: 24 MG, QD
     Route: 002
     Dates: start: 19960101

REACTIONS (2)
  - INCORRECT DRUG ADMINISTRATION DURATION [None]
  - DRUG DEPENDENCE [None]
